FAERS Safety Report 9321747 (Version 1)
Quarter: 2013Q2

REPORT INFORMATION
  Report Type: Spontaneous
  Country: BR (occurrence: BR)
  Receive Date: 20130531
  Receipt Date: 20130531
  Transmission Date: 20140414
  Serious: Yes (Other)
  Sender: FDA-Public Use
  Company Number: PHHY2013BR054689

PATIENT
  Sex: Male
  Weight: 80 kg

DRUGS (10)
  1. APRESOLIN [Suspect]
     Indication: HYPERTENSION
     Dosage: 1 DF, (25 MG) DAILY
     Route: 048
  2. DIOVAN AMLO FIX [Suspect]
     Indication: HYPERTENSION
     Dosage: 1 DF, (160/5 MG) DAILY
     Route: 048
  3. ATENSINA [Suspect]
     Dosage: 1 DF, (0.200 MG) DAILY
     Route: 048
  4. ASPIRINA PREVENT [Concomitant]
     Dosage: 1 DF, (100 MG) AFTER LUNCH
     Route: 048
  5. SUSTRATE [Concomitant]
     Indication: ANGINA PECTORIS
     Dosage: 2 DF, (10 MG) DAILY
     Route: 048
  6. CEBRALAT [Concomitant]
     Indication: OEDEMA PERIPHERAL
     Dosage: 1 DF, (50 MG) DAILY
     Route: 048
  7. CEBRALAT [Concomitant]
     Indication: PAIN IN EXTREMITY
  8. BETALOR [Concomitant]
     Indication: HYPERTENSION
     Dosage: 1 DF, (5/50 MG) DAILY
     Route: 048
  9. RIVOTRIL [Concomitant]
     Indication: SLEEP DISORDER
     Dosage: 1 DF, (2 MG) DAILY
     Route: 048
  10. OMEGA 3 [Concomitant]
     Dosage: 2 DF, DAILY
     Route: 048

REACTIONS (7)
  - Hypotension [Recovered/Resolved]
  - Asthenia [Recovered/Resolved]
  - Dizziness [Recovered/Resolved]
  - Crying [Recovered/Resolved]
  - Nervousness [Recovered/Resolved]
  - Depression [Recovered/Resolved]
  - Anxiety [Recovered/Resolved]
